FAERS Safety Report 17791265 (Version 1)
Quarter: 2020Q2

REPORT INFORMATION
  Report Type: Report from Study
  Country: AU (occurrence: AU)
  Receive Date: 20200515
  Receipt Date: 20200515
  Transmission Date: 20200714
  Serious: Yes (Other)
  Sender: FDA-Public Use
  Company Number: AU-JNJFOC-20180430223

PATIENT
  Sex: Female

DRUGS (2)
  1. STELARA [Suspect]
     Active Substance: USTEKINUMAB
     Indication: CROHN^S DISEASE
     Dosage: LAST DOSE WAS RECEIVED ON 16-MAR-2018
     Route: 058
  2. STELARA [Suspect]
     Active Substance: USTEKINUMAB
     Dosage: LAST DOSE WAS RECEIVED ON 16-MAR-2018
     Route: 058

REACTIONS (5)
  - Inappropriate schedule of product administration [Unknown]
  - Malaise [Unknown]
  - Haemorrhage [Not Recovered/Not Resolved]
  - Sinusitis [Unknown]
  - Off label use [Unknown]
